FAERS Safety Report 14283013 (Version 6)
Quarter: 2019Q1

REPORT INFORMATION
  Report Type: Spontaneous
  Country: US (occurrence: US)
  Receive Date: 20171213
  Receipt Date: 20190304
  Transmission Date: 20190417
  Serious: No
  Sender: FDA-Public Use
  Company Number: US-PFIZER INC-2017430544

PATIENT
  Age: 65 Year
  Sex: Female
  Weight: 95 kg

DRUGS (4)
  1. IBRANCE [Suspect]
     Active Substance: PALBOCICLIB
     Dosage: 500 MG, CYCLIC [DAILY 21/7 DAYS OFF]/ 21 DAYS ON AND 7 DAYS OFF
     Route: 048
     Dates: start: 2016
  2. IBRANCE [Suspect]
     Active Substance: PALBOCICLIB
     Indication: BREAST CANCER METASTATIC
     Dosage: UNK
     Dates: start: 201707
  3. IBRANCE [Suspect]
     Active Substance: PALBOCICLIB
     Dosage: 500 MG, CYCLIC [21 DAYS AND OFF FOR 7 DAYS]
     Route: 048
     Dates: start: 201607
  4. IBRANCE [Suspect]
     Active Substance: PALBOCICLIB
     Indication: BREAST CANCER METASTATIC
     Dosage: 125 MG, CYCLIC, (DAILY FOR 21 DAYS THEN TAKE 7 DAYS OFF)
     Route: 048

REACTIONS (10)
  - Dysstasia [Not Recovered/Not Resolved]
  - Alopecia [Not Recovered/Not Resolved]
  - Stomatitis [Unknown]
  - Asthenia [Not Recovered/Not Resolved]
  - Obesity [Unknown]
  - Neoplasm progression [Not Recovered/Not Resolved]
  - Tremor [Not Recovered/Not Resolved]
  - Gait disturbance [Not Recovered/Not Resolved]
  - Cognitive disorder [Unknown]
  - Arthralgia [Not Recovered/Not Resolved]

NARRATIVE: CASE EVENT DATE: 2018
